FAERS Safety Report 25787653 (Version 1)
Quarter: 2025Q3

REPORT INFORMATION
  Report Type: Spontaneous
  Country: EU (occurrence: EU)
  Receive Date: 20250910
  Receipt Date: 20250910
  Transmission Date: 20251021
  Serious: Yes (Other)
  Sender: MSN LABORATORIES PRIVATE LIMITED
  Company Number: None

PATIENT

DRUGS (11)
  1. PREGABALIN [Suspect]
     Active Substance: PREGABALIN
     Indication: Product used for unknown indication
     Dosage: 225 MILLIGRAM DAILY; (75 MG EVERY 8 HOUR)
     Route: 065
  2. AMLODIPINE [Suspect]
     Active Substance: AMLODIPINE BESYLATE
     Indication: Product used for unknown indication
     Dosage: 5 MILLIGRAM DAILY; AT BREAKFAST
     Route: 065
  3. ASPIRIN [Suspect]
     Active Substance: ASPIRIN
     Indication: Product used for unknown indication
     Dosage: 100 MILLIGRAM DAILY;
     Route: 065
  4. BROMAZEPAM [Suspect]
     Active Substance: BROMAZEPAM
     Indication: Product used for unknown indication
     Dosage: 1.5 MG, BID (AT BREAKFAST AND DINNER)
     Route: 065
  5. BROMAZEPAM [Suspect]
     Active Substance: BROMAZEPAM
     Dosage: 9 MILLIGRAM DAILY
     Route: 065
  6. LOSARTAN POTASSIUM [Suspect]
     Active Substance: LOSARTAN POTASSIUM
     Indication: Product used for unknown indication
     Dosage: 100 MILLIGRAM DAILY; AT BREAKFAST
     Route: 065
  7. OMEPRAZOLE [Suspect]
     Active Substance: OMEPRAZOLE
     Indication: Product used for unknown indication
     Dosage: 20 MILLIGRAM DAILY;
     Route: 065
  8. OXCARBAZEPINE [Suspect]
     Active Substance: OXCARBAZEPINE
     Indication: Product used for unknown indication
     Dosage: 600 MILLIGRAM DAILY;
     Route: 065
  9. QUETIAPINE [Suspect]
     Active Substance: QUETIAPINE
     Indication: Product used for unknown indication
     Dosage: 25 MG  (AT BREAKFAST AND DINNER)
     Route: 065
  10. QUETIAPINE [Suspect]
     Active Substance: QUETIAPINE
     Dosage: AT BREAKFAST AND DINNER
     Route: 065
  11. SIMVASTATIN [Suspect]
     Active Substance: SIMVASTATIN
     Indication: Product used for unknown indication
     Dosage: 10 MILLIGRAM DAILY; AT DINNER
     Route: 065

REACTIONS (2)
  - Anal incontinence [Recovered/Resolved]
  - Parkinsonism [Recovered/Resolved]
